FAERS Safety Report 16825913 (Version 1)
Quarter: 2019Q3

REPORT INFORMATION
  Report Type: Spontaneous
  Country: CA (occurrence: CA)
  Receive Date: 20190919
  Receipt Date: 20190919
  Transmission Date: 20191005
  Serious: Yes (Other)
  Sender: FDA-Public Use
  Company Number: CA-AUROBINDO-AUR-APL-2019-059633

PATIENT
  Age: 60 Year
  Sex: Male

DRUGS (8)
  1. ZOPICLONE [Concomitant]
     Active Substance: ZOPICLONE
     Indication: PRODUCT USED FOR UNKNOWN INDICATION
     Dosage: UNK
     Route: 065
  2. CITALOPRAM [Suspect]
     Active Substance: CITALOPRAM HYDROBROMIDE
     Indication: AGITATION
     Dosage: 40 MILLIGRAM, DAILY
     Route: 065
  3. QUETIAPINE. [Suspect]
     Active Substance: QUETIAPINE
     Indication: AGITATION
     Dosage: 150 MILLIGRAM, DAILY
     Route: 065
  4. VALPROIC ACID. [Suspect]
     Active Substance: VALPROIC ACID
     Indication: AGITATION
     Dosage: 250 MILLIGRAM, TWO TIMES A DAY
     Route: 065
  5. QUETIAPINE. [Suspect]
     Active Substance: QUETIAPINE
     Indication: SLEEP DISORDER
     Dosage: 75 MILLIGRAM, TWO TIMES A DAY
     Route: 065
  6. QUETIAPINE FILM-COATED TABLET [Suspect]
     Active Substance: QUETIAPINE
     Indication: SLEEP DISORDER
     Dosage: 150 MILLIGRAM, 3 TIMES A DAY
     Route: 065
  7. QUETIAPINE FILM-COATED TABLET [Suspect]
     Active Substance: QUETIAPINE
     Indication: AGITATION
  8. MEMANTINE. [Suspect]
     Active Substance: MEMANTINE
     Indication: AGITATION
     Dosage: 10 MILLIGRAM, TWO TIMES A DAY
     Route: 065

REACTIONS (4)
  - Aggression [Unknown]
  - Agitation [Unknown]
  - Drug ineffective [Unknown]
  - Insomnia [Unknown]
